FAERS Safety Report 11692793 (Version 3)
Quarter: 2015Q4

REPORT INFORMATION
  Report Type: Report from Study
  Country: BE (occurrence: BE)
  Receive Date: 20151103
  Receipt Date: 20151218
  Transmission Date: 20160304
  Serious: Yes (Hospitalization)
  Sender: FDA-Public Use
  Company Number: BE-ELI_LILLY_AND_COMPANY-BE201509006637

PATIENT
  Age: 67 Year
  Sex: Female
  Weight: 71 kg

DRUGS (12)
  1. CARBOPLATIN. [Suspect]
     Active Substance: CARBOPLATIN
     Indication: OVARIAN CANCER
     Dosage: UNK
     Route: 042
     Dates: start: 20150617
  2. GEMCITABINE HYDROCHLORIDE. [Suspect]
     Active Substance: GEMCITABINE HYDROCHLORIDE
     Indication: OVARIAN CANCER
     Dosage: UNK
     Route: 042
     Dates: start: 20150617, end: 20150916
  3. P38 MAP KINASE (LY2228820) [Suspect]
     Active Substance: RALIMETINIB
     Indication: OVARIAN CANCER
     Dosage: UNK UNK, CYCLICAL
     Route: 048
     Dates: start: 20150615
  4. TRIANAL                            /01203101/ [Concomitant]
     Indication: HAEMORRHOIDS
     Dosage: UNK
     Dates: start: 20150824
  5. COSE-ANAL [Concomitant]
     Indication: HAEMORRHOIDS
     Dosage: UNK
     Dates: start: 20150212
  6. CRANBERRY                          /01512301/ [Concomitant]
     Active Substance: CRANBERRY
     Indication: PROPHYLAXIS URINARY TRACT INFECTION
     Dosage: UNK
     Dates: start: 20150812
  7. GEMCITABINE HYDROCHLORIDE. [Suspect]
     Active Substance: GEMCITABINE HYDROCHLORIDE
     Dosage: UNK
     Route: 042
     Dates: start: 20151007
  8. DAFLON                             /00426001/ [Concomitant]
     Active Substance: DIOSMIN
     Indication: HAEMORRHOIDS
     Dosage: UNK
     Dates: start: 20141119
  9. P38 MAP KINASE (LY2228820) [Suspect]
     Active Substance: RALIMETINIB
     Indication: OVARIAN CANCER
     Dosage: UNK UNK, CYCLICAL
     Route: 048
     Dates: start: 20151027
  10. MEBEVERINE [Concomitant]
     Active Substance: MEBEVERINE
     Indication: ABDOMINAL PAIN
     Dosage: UNK
     Dates: start: 20150707
  11. LAXOBERON [Concomitant]
     Active Substance: SODIUM PICOSULFATE
     Indication: CONSTIPATION
     Dosage: UNK
     Dates: start: 20150805
  12. DULCOLAX (BISACODYL) [Concomitant]
     Active Substance: BISACODYL
     Indication: CONSTIPATION
     Dosage: UNK
     Dates: start: 20150806

REACTIONS (3)
  - Erysipelas [Recovered/Resolved]
  - Erysipelas [Recovered/Resolved]
  - Malaise [Recovered/Resolved]

NARRATIVE: CASE EVENT DATE: 20150920
